FAERS Safety Report 6398858-2 (Version None)
Quarter: 2009Q4

REPORT INFORMATION
  Report Type: 
  Country: None (occurrence: None)
  Receive Date: 20091007
  Receipt Date: 20090924
  Transmission Date: 20100525
  Serious: Yes (Other)
  Sender: FDA-Public Use
  Company Number: JPI-P-008677

PATIENT
  Sex: Male

DRUGS (10)
  1. FLUVOXAMINE MALEATE [Suspect]
     Indication: DRUG USE FOR UNKNOWN INDICATION
     Dosage: ORAL
     Route: 048
  2. SERTRALINE HCL [Suspect]
     Indication: DRUG USE FOR UNKNOWN INDICATION
     Dosage: (25 MG,1 D)
  3. SULPIRIDE [Suspect]
     Indication: DRUG USE FOR UNKNOWN INDICATION
     Dosage: ORAL
     Route: 048
  4. ETIZOLAM [Concomitant]
  5. FLUNITRAZEPAM [Concomitant]
  6. BROTIZOLAM [Concomitant]
  7. ESTAZOLAM [Concomitant]
  8. MIANSERIN HYDROCHLORIDE [Concomitant]
  9. DOMPERIDONE [Concomitant]
  10. TIZANIDINE HYDROCHLORIDE [Concomitant]

REACTIONS (2)
  - EMOTIONAL DISORDER [None]
  - FACE OEDEMA [None]
